FAERS Safety Report 20840183 (Version 1)
Quarter: 2022Q2

REPORT INFORMATION
  Report Type: Spontaneous
  Country: US (occurrence: US)
  Receive Date: 20220517
  Receipt Date: 20220517
  Transmission Date: 20220721
  Serious: Yes (Hospitalization)
  Sender: FDA-Public Use
  Company Number: US-ALLERGAN-2215806US

PATIENT
  Sex: Female

DRUGS (1)
  1. DALVANCE [Suspect]
     Active Substance: DALBAVANCIN
     Indication: Product used for unknown indication
     Dosage: UNK, SINGLE

REACTIONS (3)
  - Biliary colic [Unknown]
  - Cholelithiasis [Recovered/Resolved]
  - Discoloured vomit [Unknown]

NARRATIVE: CASE EVENT DATE: 20220401
